FAERS Safety Report 7975409-X (Version None)
Quarter: 2011Q4

REPORT INFORMATION
  Report Type: 
  Country: None (occurrence: None)
  Receive Date: 20111213
  Receipt Date: 20110927
  Transmission Date: 20120403
  Serious: No
  Sender: FDA-Public Use
  Company Number: US-AMGEN-USASP2011050688

PATIENT

DRUGS (2)
  1. ENBREL [Suspect]
     Dosage: 50 MG, UNK
  2. ENBREL [Suspect]
     Indication: JUVENILE ARTHRITIS
     Dosage: 25 MG, UNK

REACTIONS (1)
  - INJECTION SITE URTICARIA [None]
